FAERS Safety Report 6698953-4 (Version None)
Quarter: 2010Q2

REPORT INFORMATION
  Report Type: 
  Country: None (occurrence: None)
  Receive Date: 20100427
  Receipt Date: 20100413
  Transmission Date: 20101027
  Serious: Yes (Death, Life-Threatening, Hospitalization)
  Sender: FDA-Public Use
  Company Number: B0614871A

PATIENT
  Sex: Male

DRUGS (6)
  1. SERETIDE [Suspect]
     Indication: CHRONIC OBSTRUCTIVE PULMONARY DISEASE
     Dosage: 500MCG PER DAY
     Route: 055
     Dates: start: 20091008, end: 20100101
  2. UNIPHYL [Concomitant]
     Route: 048
     Dates: end: 20100101
  3. SPIRIVA [Concomitant]
     Route: 055
     Dates: end: 20100201
  4. DIOVAN [Concomitant]
     Route: 048
     Dates: end: 20100201
  5. CLARITH [Concomitant]
     Indication: CHRONIC SINUSITIS
     Route: 048
     Dates: end: 20100201
  6. DIGOXIN [Concomitant]
     Indication: ARRHYTHMIA
     Route: 048
     Dates: end: 20100201

REACTIONS (8)
  - BLOOD UREA INCREASED [None]
  - COUGH [None]
  - DYSPNOEA [None]
  - PNEUMONIA [None]
  - PNEUMONIA ASPIRATION [None]
  - PNEUMONIA BACTERIAL [None]
  - PRODUCTIVE COUGH [None]
  - PYREXIA [None]
